FAERS Safety Report 20985370 (Version 1)
Quarter: 2022Q2

REPORT INFORMATION
  Report Type: Spontaneous
  Country: NL (occurrence: NL)
  Receive Date: 20220621
  Receipt Date: 20220621
  Transmission Date: 20220721
  Serious: Yes (Life-Threatening)
  Sender: FDA-Public Use
  Company Number: None

PATIENT
  Age: 62 Year
  Sex: Male
  Weight: 79 kg

DRUGS (4)
  1. HYDROCHLOROTHIAZIDE [Suspect]
     Active Substance: HYDROCHLOROTHIAZIDE
     Indication: Disease risk factor
     Dosage: 25 MILLIGRAM DAILY; 1 X PER DAY 1 PIECE ,HYDROCHLOORTHIAZIDE\ BRAND NAME NOT SPECIFIED , FORM STRENG
     Dates: start: 2022, end: 20220227
  2. ENALAPRIL [Concomitant]
     Active Substance: ENALAPRIL
     Indication: Product used for unknown indication
     Dosage: TABLET, FORM STRENGTH :10 MG (MILLIGRAM) , BRAND NAME NOT SPECIFIED,THERAPY START DATE : NASK
     Dates: end: 20220226
  3. CICLOPIROX  / LOPROX [Concomitant]
     Indication: Product used for unknown indication
     Dosage: CREAM, FORM STRENGTH :10 MG/G (MILLIGRAM PER GRAM) ,CICLOPIROX CREME 10MG/G / LOPROX HYDROFIELE CREM
     Dates: end: 20220301
  4. SIMVASTATIN [Concomitant]
     Active Substance: SIMVASTATIN
     Indication: Product used for unknown indication
     Dosage: FILM-COATED TABLET,FORM STRENGTH  20 MG (MILLIGRAM) , TABLET FO 20MG / BRAND NAME NOT SPECIFIED ,THE
     Dates: end: 20220323

REACTIONS (1)
  - Pancreatitis acute [Recovering/Resolving]

NARRATIVE: CASE EVENT DATE: 20220227
